FAERS Safety Report 14963964 (Version 1)
Quarter: 2018Q2

REPORT INFORMATION
  Report Type: Spontaneous
  Country: US (occurrence: US)
  Receive Date: 20180601
  Receipt Date: 20180601
  Transmission Date: 20180711
  Serious: Yes (Hospitalization, Other)
  Sender: FDA-Public Use
  Company Number: US-SA-2018SA146618

PATIENT
  Age: 11 Month
  Sex: Male

DRUGS (1)
  1. LUMIZYME [Suspect]
     Active Substance: ALGLUCOSIDASE ALFA
     Indication: GLYCOGEN STORAGE DISEASE TYPE II
     Dosage: 40 MG, QOW
     Route: 041
     Dates: start: 20180426

REACTIONS (2)
  - Central venous catheterisation [Unknown]
  - Urticaria [Unknown]

NARRATIVE: CASE EVENT DATE: 20180426
